FAERS Safety Report 7738221-2 (Version None)
Quarter: 2011Q3

REPORT INFORMATION
  Report Type: 
  Country: None (occurrence: None)
  Receive Date: 20110908
  Receipt Date: 20110829
  Transmission Date: 20111222
  Serious: Yes (Hospitalization, Other)
  Sender: FDA-Public Use
  Company Number: FR-VERTEX PHARMACEUTICALS INC.-AE-2011-000141

PATIENT
  Sex: Male
  Weight: 100 kg

DRUGS (7)
  1. VX-950 [Suspect]
     Indication: HEPATITIS C
     Route: 048
     Dates: start: 20110321, end: 20110616
  2. PEGINTERFERON ALFA-2A [Concomitant]
     Indication: HEPATITIS C
     Route: 058
     Dates: start: 20110520
  3. RIBAVIRIN [Concomitant]
     Indication: HEPATITIS C
     Route: 048
     Dates: start: 20110320, end: 20110426
  4. RAMIPRIL [Concomitant]
     Indication: HYPERTENSION
     Dates: end: 20110408
  5. RIBAVIRIN [Concomitant]
     Route: 048
     Dates: start: 20110427, end: 20110508
  6. RIBAVIRIN [Concomitant]
     Route: 048
     Dates: start: 20110509
  7. COKENZEN [Concomitant]
     Indication: HYPERTENSION

REACTIONS (4)
  - BLOOD UREA INCREASED [None]
  - ANAEMIA [None]
  - BLOOD CREATININE INCREASED [None]
  - NEUTROPENIA [None]
